FAERS Safety Report 8409559-0 (Version None)
Quarter: 2012Q2

REPORT INFORMATION
  Report Type: 
  Country: None (occurrence: None)
  Receive Date: 20120605
  Receipt Date: 20120531
  Transmission Date: 20120825
  Serious: Yes (Death, Other)
  Sender: FDA-Public Use
  Company Number: US-BAYER-2012-000833

PATIENT
  Age: 64 Year
  Sex: Male
  Weight: 83.991 kg

DRUGS (4)
  1. FENTANYL-100 [Concomitant]
     Indication: CANCER PAIN
     Dosage: 12 ?G/H, UNK
     Route: 062
     Dates: start: 20111201
  2. OXYCODONE HYDROCHLORIDE [Concomitant]
     Indication: BREAKTHROUGH PAIN
     Dosage: 5 MG
  3. NEXAVAR [Suspect]
     Indication: HEPATIC NEOPLASM MALIGNANT
     Dosage: 400 MG, BID
     Route: 048
     Dates: start: 20111205, end: 20120101
  4. NADOLOL [Concomitant]
     Dosage: DAILY DOSE 20 MG

REACTIONS (10)
  - THROMBOCYTOPENIA [None]
  - HAEMOCHROMATOSIS [None]
  - LIVER FUNCTION TEST ABNORMAL [None]
  - DYSPHAGIA [None]
  - HEPATIC NEOPLASM MALIGNANT [None]
  - HEPATIC FAILURE [None]
  - HYPOAESTHESIA [None]
  - PORTAL VEIN THROMBOSIS [None]
  - CHEST PAIN [None]
  - ASCITES [None]
